FAERS Safety Report 25714818 (Version 1)
Quarter: 2025Q3

REPORT INFORMATION
  Report Type: Spontaneous
  Country: IN (occurrence: IN)
  Receive Date: 20250822
  Receipt Date: 20250822
  Transmission Date: 20251021
  Serious: Yes (Death, Hospitalization, Other)
  Sender: STRIDES
  Company Number: None

PATIENT
  Age: 70 Year
  Sex: Male

DRUGS (6)
  1. FLUCYTOSINE [Suspect]
     Active Substance: FLUCYTOSINE
     Indication: Pneumonia cryptococcal
     Route: 065
  2. FLUCONAZOLE [Suspect]
     Active Substance: FLUCONAZOLE
     Indication: Pneumonia cryptococcal
     Route: 065
  3. AMPHOTERICIN B [Suspect]
     Active Substance: AMPHOTERICIN B
     Indication: Pneumonia cryptococcal
     Route: 065
  4. AZATHIOPRINE [Concomitant]
     Active Substance: AZATHIOPRINE
     Indication: Immunosuppressant drug therapy
     Route: 065
  5. PYRIDOSTIGMINE [Concomitant]
     Active Substance: PYRIDOSTIGMINE
     Indication: Product used for unknown indication
     Route: 065
  6. Immunoglobulin [Concomitant]
     Indication: Myasthenia gravis
     Route: 065

REACTIONS (3)
  - Respiratory failure [Fatal]
  - Septic shock [Fatal]
  - Drug ineffective [Fatal]
